FAERS Safety Report 16012854 (Version 1)
Quarter: 2019Q1

REPORT INFORMATION
  Report Type: Spontaneous
  Country: DE (occurrence: DE)
  Receive Date: 20190227
  Receipt Date: 20190227
  Transmission Date: 20190418
  Serious: Yes (Other)
  Sender: FDA-Public Use
  Company Number: PHHY2019DE042908

PATIENT
  Age: 47 Year
  Sex: Male

DRUGS (1)
  1. BIOTIN [Suspect]
     Active Substance: BIOTIN
     Indication: MULTIPLE SCLEROSIS
     Dosage: 300 MG, QD
     Route: 065

REACTIONS (5)
  - Laboratory test abnormal [Recovered/Resolved]
  - Anti-thyroid antibody positive [Recovered/Resolved]
  - Drug interaction [Recovered/Resolved]
  - Hyperthyroidism [Recovered/Resolved]
  - Basedow^s disease [Recovered/Resolved]
